FAERS Safety Report 18398285 (Version 1)
Quarter: 2020Q4

REPORT INFORMATION
  Report Type: Spontaneous
  Country: US (occurrence: US)
  Receive Date: 20201019
  Receipt Date: 20201019
  Transmission Date: 20210114
  Serious: No
  Sender: FDA-Public Use
  Company Number: None

PATIENT
  Age: 57 Year
  Sex: Female

DRUGS (10)
  1. PANTOPRAZOLE, [Concomitant]
  2. ONDANSETRON, [Concomitant]
  3. DULOXETINE, [Concomitant]
  4. FLUTICASONE, [Concomitant]
  5. HYDROCO/APAP [Concomitant]
     Active Substance: ACETAMINOPHEN\HYDROCODONE
  6. LOSARTAN POT [Concomitant]
     Active Substance: LOSARTAN POTASSIUM
  7. DICYCLOMINE, [Concomitant]
  8. ROSUVASTATIN. [Concomitant]
     Active Substance: ROSUVASTATIN
  9. HUMIRA [Suspect]
     Active Substance: ADALIMUMAB
     Indication: PSORIASIS
     Route: 058
     Dates: start: 20200422
  10. CYCLOBENZAPR, [Concomitant]

REACTIONS (2)
  - Therapy interrupted [None]
  - Surgery [None]

NARRATIVE: CASE EVENT DATE: 20201015
